FAERS Safety Report 4401171-3 (Version None)
Quarter: 2004Q3

REPORT INFORMATION
  Report Type: 
  Country: None (occurrence: None)
  Receive Date: 20040907
  Receipt Date: 20031202
  Transmission Date: 20050211
  Serious: Yes (Hospitalization)
  Sender: FDA-Public Use
  Company Number: US-BRISTOL-MYERS SQUIBB COMPANY-12448056

PATIENT
  Sex: Female

DRUGS (1)
  1. COUMADIN [Suspect]
     Dosage: DOSE: 7.5 MG/D M-W-F AND SUN; 10 MG/D TU-TH- + SAT.

REACTIONS (2)
  - HAEMORRHAGE [None]
  - THROMBOSIS [None]
